FAERS Safety Report 5997086-X (Version None)
Quarter: 2008Q4

REPORT INFORMATION
  Report Type: 
  Country: None (occurrence: None)
  Receive Date: 20081208
  Receipt Date: 20081121
  Transmission Date: 20090506
  Serious: Yes (Life-Threatening, Hospitalization)
  Sender: FDA-Public Use
  Company Number: 0292

PATIENT
  Age: 63 Year
  Sex: Male

DRUGS (9)
  1. INDOMETHACIN [Suspect]
     Indication: GOUT
     Dosage: 150 MG, PO
     Route: 048
     Dates: end: 20080110
  2. LISINOPRIL [Suspect]
     Indication: CARDIAC FAILURE CONGESTIVE
     Dosage: 5 MG,
  3. SPIRONOLACTONE [Suspect]
     Indication: CARDIAC FAILURE CONGESTIVE
     Dosage: 25 MG
  4. BISOPROLOL FUMARATE [Concomitant]
  5. COLCHICINE [Concomitant]
  6. DIGOXIN [Concomitant]
  7. FUROSEMIDE [Concomitant]
  8. NITROGLYCERIN [Concomitant]
  9. WARFARIN SODIUM [Concomitant]

REACTIONS (4)
  - CONTINUOUS HAEMODIAFILTRATION [None]
  - PERFORATED ULCER [None]
  - RENAL FAILURE ACUTE [None]
  - SEPTIC SHOCK [None]
